FAERS Safety Report 7551173-3 (Version None)
Quarter: 2011Q2

REPORT INFORMATION
  Report Type: 
  Country: None (occurrence: None)
  Receive Date: 20110616
  Receipt Date: 20110601
  Transmission Date: 20111010
  Serious: Yes (Hospitalization)
  Sender: FDA-Public Use
  Company Number: PHHY2011JP48829

PATIENT
  Age: 63 Year
  Sex: Female

DRUGS (14)
  1. ARIPIPRAZOLE [Concomitant]
     Indication: BIPOLAR II DISORDER
     Dosage: UNK
     Route: 048
  2. FLUVOXAMINE MALEATE [Concomitant]
     Indication: BIPOLAR II DISORDER
     Route: 048
  3. LEVOTHYROXINE SODIUM [Concomitant]
     Indication: BIPOLAR II DISORDER
     Route: 048
  4. LITHIUM CARBONATE [Concomitant]
     Indication: BIPOLAR II DISORDER
     Dosage: UNK
     Route: 048
  5. TEGRETOL [Suspect]
     Indication: BIPOLAR II DISORDER
     Dosage: UNK
     Route: 048
  6. LAMOTRIGINE [Concomitant]
     Indication: BIPOLAR II DISORDER
     Dosage: UNK
     Route: 048
  7. SERTRALINE HYDROCHLORIDE [Concomitant]
     Indication: BIPOLAR II DISORDER
     Dosage: UNK
     Route: 048
  8. MIRTAZAPINE [Concomitant]
     Indication: BIPOLAR II DISORDER
     Dosage: UNK
     Route: 048
  9. VALPROATE SODIUM [Concomitant]
     Indication: BIPOLAR II DISORDER
     Dosage: UNK
     Route: 048
  10. QUETIAPINE FUMARATE [Concomitant]
     Indication: BIPOLAR II DISORDER
     Dosage: UNK
     Route: 048
  11. BLONANSERIN [Concomitant]
     Indication: BIPOLAR II DISORDER
     Dosage: UNK
     Route: 048
  12. PAROXETINE HCL [Concomitant]
     Indication: BIPOLAR II DISORDER
     Dosage: UNK
     Route: 048
  13. OLANZAPINE [Concomitant]
     Indication: BIPOLAR II DISORDER
     Dosage: UNK
     Route: 048
  14. MILNACIPRAN HYDROCHLORIDE [Concomitant]
     Indication: BIPOLAR II DISORDER
     Dosage: UNK
     Route: 048

REACTIONS (1)
  - BIPOLAR II DISORDER [None]
